FAERS Safety Report 18367617 (Version 1)
Quarter: 2020Q4

REPORT INFORMATION
  Report Type: Not Available
  Country: US (occurrence: US)
  Receive Date: 20201009
  Receipt Date: 20201009
  Transmission Date: 20210114
  Serious: No
  Sender: FDA-Public Use
  Company Number: US-C B FLEET CO INC-201910-US-003388

PATIENT
  Sex: Female

DRUGS (1)
  1. MONISTAT 7 WITH REUSABLE APPLICATOR [Suspect]
     Active Substance: MICONAZOLE NITRATE
     Indication: PRODUCT USED FOR UNKNOWN INDICATION
     Dosage: USED 2 APPLICATIONS
     Route: 067

REACTIONS (2)
  - Condition aggravated [Recovered/Resolved]
  - Vulvovaginal pain [Recovered/Resolved]
